FAERS Safety Report 5088061-0 (Version None)
Quarter: 2006Q3

REPORT INFORMATION
  Report Type: 
  Country: None (occurrence: None)
  Receive Date: 20060821
  Receipt Date: 20060712
  Transmission Date: 20061208
  Serious: Yes (Hospitalization)
  Sender: FDA-Public Use
  Company Number: 2006063556

PATIENT
  Age: 60 Year
  Sex: Male
  Weight: 97.5234 kg

DRUGS (11)
  1. BEXTRA [Suspect]
     Indication: OSTEOARTHRITIS
     Dosage: 20 MG (20 MG, 1 IN 1 D)
     Dates: start: 20000101, end: 20040412
  2. INTEGRILIN [Concomitant]
  3. LANOXIN [Concomitant]
  4. LIPITOR [Concomitant]
  5. DARVOCET-N 100 [Concomitant]
  6. CORDARONE [Concomitant]
  7. LOTREL [Concomitant]
  8. TOPROL-XL [Concomitant]
  9. ASPIRIN [Concomitant]
  10. K-DUR 10 [Concomitant]
  11. PEPCID [Concomitant]

REACTIONS (9)
  - ANXIETY [None]
  - ATRIAL FIBRILLATION [None]
  - CORONARY ARTERY OCCLUSION [None]
  - DEPRESSION [None]
  - ERECTILE DYSFUNCTION [None]
  - GRAFT HAEMORRHAGE [None]
  - MYOCARDIAL INFARCTION [None]
  - POST PROCEDURAL HAEMORRHAGE [None]
  - VASCULAR GRAFT OCCLUSION [None]
